FAERS Safety Report 6142851-1 (Version None)
Quarter: 2009Q2

REPORT INFORMATION
  Report Type: 
  Country: None (occurrence: None)
  Receive Date: 20090403
  Receipt Date: 20090327
  Transmission Date: 20091009
  Serious: Yes (Other)
  Sender: FDA-Public Use
  Company Number: DE-AMGEN-UK331799

PATIENT
  Sex: Female

DRUGS (6)
  1. NEULASTA [Suspect]
     Indication: CHEMOTHERAPY
     Route: 065
  2. TAXOTERE [Suspect]
     Route: 065
  3. FLUOROURACIL [Concomitant]
     Route: 065
  4. EPIRUBICIN [Concomitant]
  5. CYCLOPHOSPHAMIDE [Concomitant]
     Route: 065
  6. HERCEPTIN [Concomitant]
     Route: 065

REACTIONS (3)
  - EPISTAXIS [None]
  - NASAL SEPTUM DISORDER [None]
  - VASCULITIS [None]
